FAERS Safety Report 10172796 (Version 1)
Quarter: 2014Q2

REPORT INFORMATION
  Report Type: Spontaneous
  Country: US (occurrence: US)
  Receive Date: 20140515
  Receipt Date: 20140515
  Transmission Date: 20141212
  Serious: Yes (Other)
  Sender: FDA-Public Use
  Company Number: US-GLAXOSMITHKLINE-A1072952A

PATIENT
  Age: 59 Year
  Sex: Female

DRUGS (6)
  1. ALLI [Suspect]
     Indication: WEIGHT LOSS DIET
     Route: 048
     Dates: start: 201403, end: 20140511
  2. SUMATRIPTAN [Suspect]
     Route: 065
  3. CRESTOR [Suspect]
  4. ZETIA [Suspect]
  5. PROPRANOLOL [Suspect]
  6. AMITRIPTYLINE [Suspect]

REACTIONS (5)
  - Rectal haemorrhage [Recovered/Resolved]
  - Intestinal haemorrhage [Recovered/Resolved]
  - Drug interaction [Recovered/Resolved]
  - Abdominal distension [Recovered/Resolved]
  - Frequent bowel movements [Recovered/Resolved]
